FAERS Safety Report 21841416 (Version 1)
Quarter: 2023Q1

REPORT INFORMATION
  Report Type: Spontaneous
  Country: US (occurrence: None)
  Receive Date: 20230107
  Receipt Date: 20230107
  Transmission Date: 20230418
  Serious: Yes (Hospitalization)
  Sender: FDA-Public Use
  Company Number: None

PATIENT
  Age: 56 Year
  Sex: Female
  Weight: 70 kg

DRUGS (1)
  1. LOSARTAN [Suspect]
     Active Substance: LOSARTAN
     Indication: Hypertension
     Dosage: 50 MG EVERY DAY PO?
     Route: 048
     Dates: start: 20220623, end: 20220811

REACTIONS (2)
  - Suprapubic pain [None]
  - Pancreatitis [None]

NARRATIVE: CASE EVENT DATE: 20220810
